FAERS Safety Report 19561626 (Version 3)
Quarter: 2021Q3

REPORT INFORMATION
  Report Type: Spontaneous
  Country: US (occurrence: US)
  Receive Date: 20210715
  Receipt Date: 20210901
  Transmission Date: 20211014
  Serious: No
  Sender: FDA-Public Use
  Company Number: US-GLAXOSMITHKLINE-US2021151604

PATIENT
  Sex: Female

DRUGS (1)
  1. FLOVENT HFA [Suspect]
     Active Substance: FLUTICASONE PROPIONATE
     Indication: ASTHMA
     Dosage: 110 UG, 120 D
     Route: 055

REACTIONS (4)
  - Oral infection [Not Recovered/Not Resolved]
  - Product complaint [Unknown]
  - Speech disorder [Not Recovered/Not Resolved]
  - Oral pain [Not Recovered/Not Resolved]
